FAERS Safety Report 8216867-5 (Version None)
Quarter: 2012Q1

REPORT INFORMATION
  Report Type: 
  Country: None (occurrence: None)
  Receive Date: 20120316
  Receipt Date: 20120307
  Transmission Date: 20120608
  Serious: Yes (Hospitalization, Other)
  Sender: FDA-Public Use
  Company Number: US-ASTRAZENECA-2012SE15706

PATIENT
  Age: 59 Year
  Sex: Female
  Weight: 58.1 kg

DRUGS (7)
  1. SEROQUEL [Suspect]
     Dosage: 200 MG IN THE AFTERNOON
     Route: 048
     Dates: start: 20060101
  2. TOPAMAX [Concomitant]
     Indication: DEPRESSION
     Route: 048
  3. COUMADIN [Concomitant]
     Indication: THROMBOSIS
  4. SEROQUEL [Suspect]
     Indication: BIPOLAR DISORDER
     Route: 048
     Dates: start: 20060101
  5. TRAZODONE HCL [Concomitant]
     Indication: SLEEP DISORDER
     Route: 048
  6. SEROQUEL [Suspect]
     Route: 048
     Dates: start: 20060101
  7. CITALOPRAM HYDROBROMIDE [Concomitant]
     Indication: DEPRESSION
     Route: 048

REACTIONS (6)
  - BLOOD DISORDER [None]
  - PANIC ATTACK [None]
  - CRYING [None]
  - THROMBOSIS [None]
  - SUICIDAL IDEATION [None]
  - FEELING ABNORMAL [None]
